FAERS Safety Report 25333824 (Version 2)
Quarter: 2025Q2

REPORT INFORMATION
  Report Type: Spontaneous
  Country: TR (occurrence: TR)
  Receive Date: 20250520
  Receipt Date: 20250530
  Transmission Date: 20250717
  Serious: Yes (Other)
  Sender: UCB
  Company Number: TR-MLMSERVICE-20250509-PI501522-00196-1

PATIENT
  Age: 2 Decade
  Sex: Female

DRUGS (2)
  1. KEPPRA [Suspect]
     Active Substance: LEVETIRACETAM
     Indication: Generalised tonic-clonic seizure
  2. CLONAZEPAM [Concomitant]
     Active Substance: CLONAZEPAM
     Indication: Generalised tonic-clonic seizure

REACTIONS (4)
  - Self-destructive behaviour [Unknown]
  - Irritability [Unknown]
  - Anger [Unknown]
  - Drug ineffective [Unknown]
